FAERS Safety Report 14723652 (Version 9)
Quarter: 2019Q2

REPORT INFORMATION
  Report Type: Report from Study
  Country: None (occurrence: NL)
  Receive Date: 20180405
  Receipt Date: 20190521
  Transmission Date: 20190711
  Serious: Yes (Life-Threatening, Other)
  Sender: FDA-Public Use
  Company Number: NL-ABBVIE-18K-114-2312939-00

PATIENT
  Age: 76 Year
  Sex: Female
  Weight: 58 kg

DRUGS (5)
  1. MADOPAR [Concomitant]
     Active Substance: BENSERAZIDE HYDROCHLORIDE\LEVODOPA
     Indication: PRODUCT USED FOR UNKNOWN INDICATION
  2. DUODOPA [Suspect]
     Active Substance: CARBIDOPA\LEVODOPA
     Indication: PARKINSON^S DISEASE
     Dosage: MD 4 ML CD 2.1 ML ED 1.7ML
     Route: 050
  3. DUODOPA [Suspect]
     Active Substance: CARBIDOPA\LEVODOPA
     Dosage: MD 4ML CD 2.4ML ED 1.8ML
     Route: 050
  4. DUODOPA [Suspect]
     Active Substance: CARBIDOPA\LEVODOPA
     Dosage: MD: 4.0, CD: 2.4, ED: 2.0
     Route: 050
  5. PAROXETINE. [Suspect]
     Active Substance: PAROXETINE
     Indication: PRODUCT USED FOR UNKNOWN INDICATION
     Route: 065
     Dates: start: 20180330, end: 2018

REACTIONS (26)
  - Device occlusion [Unknown]
  - Restlessness [Not Recovered/Not Resolved]
  - Chorea [Not Recovered/Not Resolved]
  - Device alarm issue [Unknown]
  - Drug ineffective [Not Recovered/Not Resolved]
  - Dyskinesia [Not Recovered/Not Resolved]
  - Abnormal dreams [Not Recovered/Not Resolved]
  - Listless [Recovered/Resolved]
  - Depression [Recovered/Resolved]
  - Stoma site discharge [Recovered/Resolved]
  - Abnormal loss of weight [Recovered/Resolved]
  - Nocturia [Not Recovered/Not Resolved]
  - Device breakage [Unknown]
  - Weight decreased [Recovered/Resolved]
  - Chills [Not Recovered/Not Resolved]
  - On and off phenomenon [Not Recovered/Not Resolved]
  - Bradykinesia [Not Recovered/Not Resolved]
  - Suicidal ideation [Recovered/Resolved]
  - Panic attack [Not Recovered/Not Resolved]
  - Anxiety [Unknown]
  - Initial insomnia [Unknown]
  - Abnormal dreams [Recovered/Resolved]
  - Amnesia [Recovered/Resolved]
  - Device leakage [Recovered/Resolved]
  - Feeling abnormal [Not Recovered/Not Resolved]
  - Muscle rigidity [Not Recovered/Not Resolved]

NARRATIVE: CASE EVENT DATE: 20180330
